FAERS Safety Report 5469555-2 (Version None)
Quarter: 2007Q3

REPORT INFORMATION
  Report Type: 
  Country: None (occurrence: None)
  Receive Date: 20070925
  Receipt Date: 20070925
  Transmission Date: 20080115
  Serious: Yes (Other)
  Sender: FDA-Public Use
  Company Number: None

PATIENT
  Sex: Female
  Weight: 99.7913 kg

DRUGS (4)
  1. METHYLDOPA [Suspect]
     Indication: ECLAMPSIA
     Dosage: 500 MG 2 DAILY PO
     Route: 048
     Dates: start: 20070509, end: 20070819
  2. METHYLDOPA [Suspect]
     Indication: HYPERTENSION
     Dosage: 500 MG 2 DAILY PO
     Route: 048
     Dates: start: 20070509, end: 20070819
  3. METHYLDOPA [Suspect]
     Indication: ECLAMPSIA
     Dosage: 500 MG 2 DAILY PO
     Route: 048
     Dates: start: 20070509, end: 20070819
  4. METHYLDOPA [Suspect]
     Indication: HYPERTENSION
     Dosage: 500 MG 2 DAILY PO
     Route: 048
     Dates: start: 20070509, end: 20070819

REACTIONS (6)
  - BLOOD BILIRUBIN INCREASED [None]
  - FAECES PALE [None]
  - HEPATIC ENZYME INCREASED [None]
  - OCULAR ICTERUS [None]
  - URINE COLOUR ABNORMAL [None]
  - YELLOW SKIN [None]
